FAERS Safety Report 6227408-6 (Version None)
Quarter: 2009Q2

REPORT INFORMATION
  Report Type: 
  Country: None (occurrence: None)
  Receive Date: 20090610
  Receipt Date: 20090610
  Transmission Date: 20091009
  Serious: Yes (Life-Threatening, Disabling)
  Sender: FDA-Public Use
  Company Number: None

PATIENT
  Sex: Female
  Weight: 54.4316 kg

DRUGS (1)
  1. ZOLOFT [Suspect]
     Indication: DEPRESSION
     Dosage: 1 PILL DAILY PO
     Route: 048
     Dates: start: 20090316, end: 20090605

REACTIONS (10)
  - AGGRESSION [None]
  - ANXIETY [None]
  - CRYING [None]
  - IMPRISONMENT [None]
  - NERVOUSNESS [None]
  - PARANOIA [None]
  - PHYSICAL ASSAULT [None]
  - SUICIDAL IDEATION [None]
  - SUSPICIOUSNESS [None]
  - TACHYPHRENIA [None]
